FAERS Safety Report 7151270-0 (Version None)
Quarter: 2010Q4

REPORT INFORMATION
  Report Type: 
  Country: None (occurrence: None)
  Receive Date: 20101210
  Receipt Date: 20101130
  Transmission Date: 20110411
  Serious: Yes (Other)
  Sender: FDA-Public Use
  Company Number: US-JNJFOC-20101201702

PATIENT
  Age: 29 Year
  Sex: Female

DRUGS (3)
  1. INFLIXIMAB, RECOMBINANT [Suspect]
     Indication: CROHN'S DISEASE
     Dosage: 5 INFUSIONS ADMINISTERED OVER 2 YEARS
     Route: 042
  2. DIPHENHYDRAMINE [Concomitant]
     Indication: PREMEDICATION
     Route: 048
  3. ACETAMINOPHEN [Concomitant]
     Indication: PREMEDICATION
     Route: 048

REACTIONS (1)
  - MALIGNANT MELANOMA IN SITU [None]
